FAERS Safety Report 18388868 (Version 1)
Quarter: 2020Q4

REPORT INFORMATION
  Report Type: Report from Study
  Country: PE (occurrence: PE)
  Receive Date: 20201015
  Receipt Date: 20201015
  Transmission Date: 20210114
  Serious: Yes (Hospitalization)
  Sender: FDA-Public Use
  Company Number: PE-BIOGEN-2020BI00934777

PATIENT
  Age: 40 Year
  Sex: Male
  Weight: 58 kg

DRUGS (5)
  1. AVONEX [Suspect]
     Active Substance: INTERFERON BETA-1A
     Indication: RELAPSING MULTIPLE SCLEROSIS
     Route: 030
     Dates: start: 20190809
  2. AVONEX [Suspect]
     Active Substance: INTERFERON BETA-1A
  3. SUPRACAL (CALCIUM CITRATE/VITAMIN D) [Concomitant]
     Indication: PREMEDICATION
     Dosage: 1 TAB HALF HOUR PRIOR AVONEX ADMINISTRATION, THEN 4 HOURS AFTER APPLICATION
     Route: 065
     Dates: start: 2019
  4. AVONEX [Suspect]
     Active Substance: INTERFERON BETA-1A
  5. AVONEX [Suspect]
     Active Substance: INTERFERON BETA-1A

REACTIONS (2)
  - Tremor [Recovered/Resolved]
  - Muscular weakness [Recovered/Resolved]

NARRATIVE: CASE EVENT DATE: 20200926
